FAERS Safety Report 8308301-1 (Version None)
Quarter: 2012Q2

REPORT INFORMATION
  Report Type: 
  Country: None (occurrence: None)
  Receive Date: 20120424
  Receipt Date: 20120412
  Transmission Date: 20120825
  Serious: Yes (Other)
  Sender: FDA-Public Use
  Company Number: GB-PFIZER INC-2012093768

PATIENT
  Age: 48 Year
  Sex: Female
  Weight: 70 kg

DRUGS (12)
  1. DOMPERIDONE [Suspect]
     Dosage: 20 MG, UNK
     Route: 048
  2. RANITIDINE [Suspect]
     Dosage: 50 MG, UNK
     Route: 042
  3. PEGFILGRASTIM [Suspect]
     Dosage: 6 MG, UNK
     Route: 058
  4. DEXAMETHASONE [Suspect]
     Dosage: 20 MG, UNK
     Route: 042
  5. DOMPERIDONE [Suspect]
     Dosage: 20 MG, UNK
     Route: 048
  6. DEXAMETHASONE [Suspect]
     Dosage: 4 MG, 2X/DAY
     Route: 048
  7. GRANISETRON [Suspect]
     Dosage: 1 MG, 2X/DAY
     Route: 048
  8. CHLORPHENAMINE [Suspect]
     Dosage: 10 MG, UNK
     Route: 042
  9. BIOTENE MOUTHWASH [Concomitant]
  10. DOCUSATE [Concomitant]
     Route: 048
  11. PACLITAXEL [Suspect]
     Indication: BREAST CANCER
     Dosage: 315 MG, EVERY TWO WEEKS
     Route: 042
     Dates: start: 20110524, end: 20110607
  12. PACLITAXEL [Suspect]
     Dosage: 300 MG, UNK
     Route: 042
     Dates: start: 20110621, end: 20110705

REACTIONS (3)
  - FATIGUE [None]
  - DYSPNOEA [None]
  - CHEST DISCOMFORT [None]
